FAERS Safety Report 10420876 (Version 1)
Quarter: 2014Q3

REPORT INFORMATION
  Report Type: Spontaneous
  Country: US (occurrence: None)
  Receive Date: 20140714
  Receipt Date: 20140714
  Transmission Date: 20150326
  Serious: Yes (Other)
  Sender: FDA-Public Use
  Company Number: 2014US003192

PATIENT
  Age: 65 Year
  Sex: Male

DRUGS (3)
  1. ICLUSIG [Suspect]
     Active Substance: PONATINIB
     Indication: CHRONIC MYELOID LEUKAEMIA
     Route: 048
     Dates: start: 20140331, end: 2014
  2. NORVASC [Concomitant]
     Active Substance: AMLODIPINE BESYLATE
  3. METOPROLOL (METOPROLOL TARTRATE) [Concomitant]
     Active Substance: METOPROLOL TARTRATE

REACTIONS (2)
  - Extrasystoles [None]
  - Blood pressure increased [None]

NARRATIVE: CASE EVENT DATE: 20140402
